FAERS Safety Report 24892546 (Version 2)
Quarter: 2025Q2

REPORT INFORMATION
  Report Type: Spontaneous
  Country: AU (occurrence: AU)
  Receive Date: 20250128
  Receipt Date: 20250520
  Transmission Date: 20250717
  Serious: Yes (Other)
  Sender: Haleon PLC
  Company Number: AU-JNJFOC-20241001358

PATIENT
  Sex: Male

DRUGS (3)
  1. NICORETTE [Suspect]
     Active Substance: NICOTINE
     Indication: Smoking cessation therapy
     Route: 065
  2. NICORETTE [Suspect]
     Active Substance: NICOTINE
     Indication: Smoking cessation therapy
     Route: 065
  3. NICORETTE [Suspect]
     Active Substance: NICOTINE
     Indication: Smoking cessation therapy
     Route: 065

REACTIONS (1)
  - Drug dependence [Unknown]
